FAERS Safety Report 7485581-6 (Version None)
Quarter: 2011Q2

REPORT INFORMATION
  Report Type: 
  Country: None (occurrence: None)
  Receive Date: 20110509
  Receipt Date: 20110429
  Transmission Date: 20111010
  Serious: Yes (Hospitalization, Other)
  Sender: FDA-Public Use
  Company Number: 2010SP014793

PATIENT
  Age: 45 Year
  Sex: Female
  Weight: 99.7913 kg

DRUGS (2)
  1. NUVARING [Suspect]
     Indication: CONTRACEPTION
     Dates: start: 20070302, end: 20080302
  2. TAMIFLU [Concomitant]

REACTIONS (20)
  - DIPLOPIA [None]
  - CEREBELLAR INFARCTION [None]
  - ATRIAL SEPTAL DEFECT [None]
  - CAROTID ARTERIOSCLEROSIS [None]
  - TRICUSPID VALVE INCOMPETENCE [None]
  - TONSILLECTOMY [None]
  - METABOLIC ACIDOSIS [None]
  - THROMBOSIS [None]
  - DYSMENORRHOEA [None]
  - VERTIGO [None]
  - MITRAL VALVE INCOMPETENCE [None]
  - DIVERTICULITIS [None]
  - HYPERTENSION [None]
  - TINNITUS [None]
  - PNEUMONIA [None]
  - BRONCHITIS [None]
  - THROMBOTIC STROKE [None]
  - DIVERTICULUM [None]
  - ASTHMA [None]
  - DEAFNESS UNILATERAL [None]
